FAERS Safety Report 17116170 (Version 6)
Quarter: 2022Q3

REPORT INFORMATION
  Report Type: Spontaneous
  Country: US (occurrence: US)
  Receive Date: 20191205
  Receipt Date: 20220711
  Transmission Date: 20221026
  Serious: Yes (Hospitalization, Other)
  Sender: FDA-Public Use
  Company Number: US-PFIZER INC-2019522383

PATIENT
  Age: 67 Year
  Sex: Male
  Weight: 93.424 kg

DRUGS (1)
  1. XELJANZ [Suspect]
     Active Substance: TOFACITINIB CITRATE
     Indication: Colitis ulcerative
     Dosage: 5 MG, 2X/DAY
     Route: 048
     Dates: start: 201701

REACTIONS (7)
  - Diabetes mellitus [Not Recovered/Not Resolved]
  - Crohn^s disease [Unknown]
  - Pancreatitis [Unknown]
  - Rectal haemorrhage [Unknown]
  - Condition aggravated [Recovered/Resolved]
  - Pain in extremity [Unknown]
  - Intentional product use issue [Recovered/Resolved]

NARRATIVE: CASE EVENT DATE: 20191020
